FAERS Safety Report 7728093-4 (Version None)
Quarter: 2011Q3

REPORT INFORMATION
  Report Type: 
  Country: None (occurrence: None)
  Receive Date: 20110905
  Receipt Date: 20110830
  Transmission Date: 20111222
  Serious: Yes (Hospitalization)
  Sender: FDA-Public Use
  Company Number: FR-BRISTOL-MYERS SQUIBB COMPANY-16023574

PATIENT
  Age: 53 Year
  Sex: Male

DRUGS (6)
  1. EXFORGE [Suspect]
     Dosage: 1DF=5MG/160MG DURATION:ATLEAST 2 YEARS
     Dates: end: 20110822
  2. ANAFRANIL [Suspect]
     Dosage: DURATION:MORE THAN 2 YEARS
  3. EFFEXOR [Suspect]
     Dosage: DOSE REDUCED TO 37.5 MG/D
  4. FEBUXOSTAT [Concomitant]
     Route: 048
  5. ABILIFY [Suspect]
     Dosage: DURATION:MORE THAN 2 YEARS
  6. FENOFIBRATE [Concomitant]
     Dosage: 1DF=67.UNIT NOT SPECIFIED. DURATION:ATLEAST 2 YEARS
     Route: 048

REACTIONS (5)
  - DEHYDRATION [None]
  - HYPOTHERMIA [None]
  - ORTHOSTATIC HYPOTENSION [None]
  - HYPONATRAEMIA [None]
  - ASTHENIA [None]
